FAERS Safety Report 19588890 (Version 1)
Quarter: 2021Q3

REPORT INFORMATION
  Report Type: Report from Study
  Country: MA (occurrence: MA)
  Receive Date: 20210721
  Receipt Date: 20210721
  Transmission Date: 20211014
  Serious: Yes (Death)
  Sender: FDA-Public Use
  Company Number: NVSC2020MA169991

PATIENT
  Sex: Female

DRUGS (1)
  1. AFINITOR [Suspect]
     Active Substance: EVEROLIMUS
     Indication: BREAST CANCER
     Dosage: 5 MG, BID
     Route: 048
     Dates: start: 20200528

REACTIONS (11)
  - Condition aggravated [Unknown]
  - Peripheral swelling [Unknown]
  - Fatigue [Unknown]
  - Illness [Unknown]
  - Inappropriate schedule of product administration [Unknown]
  - Renal disorder [Unknown]
  - Death [Fatal]
  - Cardiac discomfort [Unknown]
  - Breast disorder female [Unknown]
  - Dry mouth [Unknown]
  - Gait inability [Unknown]
